FAERS Safety Report 23899211 (Version 2)
Quarter: 2024Q3

REPORT INFORMATION
  Report Type: Spontaneous
  Country: FR (occurrence: FR)
  Receive Date: 20240526
  Receipt Date: 20240702
  Transmission Date: 20241017
  Serious: Yes (Hospitalization, Other)
  Sender: AUROBINDO
  Company Number: FR-AFSSAPS-TO2024000809

PATIENT
  Age: 85 Year
  Sex: Male
  Weight: 80.8 kg

DRUGS (6)
  1. PREDNISONE [Suspect]
     Active Substance: PREDNISONE
     Indication: Follicular lymphoma
     Dosage: 20 MILLIGRAM, DAILY (20MG/D 10 DAYS PER MONTH)
     Route: 048
     Dates: start: 20240208, end: 20240218
  2. PREDNISONE [Suspect]
     Active Substance: PREDNISONE
     Dosage: 20 MILLIGRAM, DAILY (20MG/D 10 DAYS PER MONTH)
     Route: 048
     Dates: start: 20240208, end: 20240219
  3. CYCLOPHOSPHAMIDE [Suspect]
     Active Substance: CYCLOPHOSPHAMIDE
     Indication: Follicular lymphoma
     Dosage: 20 MILLIGRAM, DAILY (20MG/D 10 DAYS PER MONTH)
     Route: 048
     Dates: start: 20240208, end: 20240218
  4. CYCLOPHOSPHAMIDE [Suspect]
     Active Substance: CYCLOPHOSPHAMIDE
     Dosage: 50 MILLIGRAM, DAILY (50MG/D 10 DAYS PER MONTH)
     Route: 048
     Dates: start: 20240208, end: 20240219
  5. ETOPOSIDE [Suspect]
     Active Substance: ETOPOSIDE
     Indication: Follicular lymphoma
     Dosage: 50 MILLIGRAM, DAILY (50MG/D 10 DAYS PER MONTH)
     Route: 048
     Dates: start: 20240208, end: 20240219
  6. PROCARBAZINE [Suspect]
     Active Substance: PROCARBAZINE
     Indication: Follicular lymphoma
     Dosage: 50 MILLIGRAM, DAILY (50MG/D 10 DAYS PER MONTH)
     Route: 048
     Dates: start: 20240208, end: 20240219

REACTIONS (5)
  - Febrile bone marrow aplasia [Recovered/Resolved]
  - Neutropenia [Recovered/Resolved]
  - Pneumonia [Recovered/Resolved]
  - Leukopenia [Recovered/Resolved]
  - Anaemia [Recovering/Resolving]

NARRATIVE: CASE EVENT DATE: 20240221
